FAERS Safety Report 17122324 (Version 1)
Quarter: 2019Q4

REPORT INFORMATION
  Report Type: Spontaneous
  Country: IT (occurrence: IT)
  Receive Date: 20191206
  Receipt Date: 20191206
  Transmission Date: 20200122
  Serious: Yes (Other)
  Sender: FDA-Public Use
  Company Number: IT-PFIZER INC-2019523291

PATIENT
  Age: 42 Year
  Sex: Male
  Weight: 70 kg

DRUGS (5)
  1. TAVOR (LORAZEPAM) [Suspect]
     Active Substance: LORAZEPAM
     Dosage: 2.5 MG, UNK (5 TABLETS)
     Dates: start: 20191107
  2. HALCION [Suspect]
     Active Substance: TRIAZOLAM
     Dosage: 0.25 MG, UNK (4 TABLETS)
     Dates: start: 20191107
  3. OLANZAPINE. [Suspect]
     Active Substance: OLANZAPINE
     Dosage: 10 MG, UNK (5 TABLETS)
     Dates: start: 20191107
  4. ENTUMIN [Suspect]
     Active Substance: CLOTHIAPINE
     Dosage: 10 ML, UNK
     Dates: start: 20191107
  5. HALDOL [Suspect]
     Active Substance: HALOPERIDOL
     Dosage: 40 GTT, UNK (30 ML BOTTLE)
     Route: 048
     Dates: start: 20191107

REACTIONS (2)
  - Intentional self-injury [Unknown]
  - Intentional overdose [Unknown]

NARRATIVE: CASE EVENT DATE: 20191107
